FAERS Safety Report 12361306 (Version 1)
Quarter: 2016Q2

REPORT INFORMATION
  Report Type: Spontaneous
  Country: FR (occurrence: FR)
  Receive Date: 20160512
  Receipt Date: 20160512
  Transmission Date: 20160815
  Serious: Yes (Hospitalization, Other)
  Sender: FDA-Public Use
  Company Number: FR-BAXTER-2016BAX023450

PATIENT
  Age: 65 Year
  Sex: Male

DRUGS (39)
  1. ENDOXAN 1000 MG, POUDRE POUR SOLUTION INJECTABLE [Suspect]
     Active Substance: CYCLOPHOSPHAMIDE
     Indication: PLASMA CELL MYELOMA
     Dosage: HIGH DOSE
     Route: 065
     Dates: start: 20110328
  2. ENDOXAN 1000 MG, POUDRE POUR SOLUTION INJECTABLE [Suspect]
     Active Substance: CYCLOPHOSPHAMIDE
     Dosage: 6 COURSES
     Route: 042
     Dates: start: 201504, end: 201510
  3. VELCADE [Suspect]
     Active Substance: BORTEZOMIB
     Dosage: ONCE PER CYCLE 1 COURSE
     Route: 042
     Dates: start: 20110222
  4. VELCADE [Suspect]
     Active Substance: BORTEZOMIB
     Dosage: ONCE PER CYCLE 1 COURSE
     Route: 042
     Dates: start: 20110422
  5. VELCADE [Suspect]
     Active Substance: BORTEZOMIB
     Dosage: ONCE PER CYCLE
     Route: 042
     Dates: end: 201601
  6. IMNOVID [Suspect]
     Active Substance: POMALIDOMIDE
     Indication: PLASMA CELL MYELOMA
     Dosage: 6 COURSES
     Route: 042
     Dates: start: 201504, end: 201510
  7. MELPHALAN [Suspect]
     Active Substance: MELPHALAN
     Indication: PLASMA CELL MYELOMA
     Dosage: HIGH DOSE 180 (UNIT NOT REPORTED)
     Route: 065
     Dates: start: 20110816
  8. REVLIMID [Suspect]
     Active Substance: LENALIDOMIDE
     Dosage: ONCE PER CYCLE 1 REDUCED COURSE (T1 AND T8)
     Route: 048
     Dates: start: 20110603
  9. REVLIMID [Suspect]
     Active Substance: LENALIDOMIDE
     Dosage: INTENSIFIED COURSE (FOR 14 DAYS)
     Route: 048
     Dates: start: 201304
  10. VELCADE [Suspect]
     Active Substance: BORTEZOMIB
     Dosage: ONCE PER CYCLE 1 REDUCED COURSE
     Route: 042
     Dates: start: 20110603
  11. DEXAMETHASONE. [Suspect]
     Active Substance: DEXAMETHASONE
     Indication: PLASMA CELL MYELOMA
     Dosage: 3 COURSES
     Route: 065
     Dates: start: 20101218, end: 20110201
  12. AREDIA [Suspect]
     Active Substance: PAMIDRONATE DISODIUM
     Dosage: 6 COURSES
     Route: 065
     Dates: start: 201504, end: 201510
  13. REVLIMID [Suspect]
     Active Substance: LENALIDOMIDE
     Dosage: ONCE PER CYCLE 1 REDUCED COURSE (T1 AND T8)
     Route: 048
     Dates: start: 20110701
  14. VELCADE [Suspect]
     Active Substance: BORTEZOMIB
     Dosage: ONCE PER CYCLE 1 REDUCED COURSE
     Route: 042
     Dates: start: 20110701
  15. VELCADE [Suspect]
     Active Substance: BORTEZOMIB
     Dosage: ONE INJECTION
     Route: 042
     Dates: start: 20110816
  16. VELCADE [Suspect]
     Active Substance: BORTEZOMIB
     Dosage: ONCE PER CYCLE 4 COURSES
     Route: 042
     Dates: start: 20111206, end: 20120214
  17. VELCADE [Suspect]
     Active Substance: BORTEZOMIB
     Dosage: INTENSIFIED COURSE
     Route: 042
     Dates: start: 201304
  18. DEXAMETHASONE. [Suspect]
     Active Substance: DEXAMETHASONE
     Dosage: 1 REDUCED COURSE
     Route: 065
     Dates: start: 20110603
  19. DEXAMETHASONE. [Suspect]
     Active Substance: DEXAMETHASONE
     Dosage: 4 COURSES
     Route: 065
     Dates: start: 20111206, end: 20120214
  20. DEXAMETHASONE. [Suspect]
     Active Substance: DEXAMETHASONE
     Dosage: CONSOLIDATION COURSE
     Route: 065
     Dates: start: 201511, end: 201601
  21. MELPHALAN [Suspect]
     Active Substance: MELPHALAN
     Dosage: HIGH DOSE 140 (UNIT NOT REPORTED)
     Route: 065
     Dates: start: 20111025
  22. DEXAMETHASONE. [Suspect]
     Active Substance: DEXAMETHASONE
     Dosage: 1 REDUCED COURSE
     Route: 065
     Dates: start: 20110701
  23. DEXAMETHASONE. [Suspect]
     Active Substance: DEXAMETHASONE
     Dosage: 6 COURSES
     Route: 065
     Dates: start: 201504, end: 201510
  24. AREDIA [Suspect]
     Active Substance: PAMIDRONATE DISODIUM
     Indication: PLASMA CELL MYELOMA
     Dosage: 1 COURSE
     Route: 065
     Dates: start: 20110422
  25. REVLIMID [Suspect]
     Active Substance: LENALIDOMIDE
     Indication: PLASMA CELL MYELOMA
     Dosage: ONCE PER CYCLE 1 COURSE
     Route: 048
     Dates: start: 20110222
  26. REVLIMID [Suspect]
     Active Substance: LENALIDOMIDE
     Dosage: ONCE PER CYCLE 4 COURSES (FOR 11 DAYS)
     Route: 048
     Dates: start: 20111206, end: 20120214
  27. VELCADE [Suspect]
     Active Substance: BORTEZOMIB
     Indication: PLASMA CELL MYELOMA
     Dosage: ONCE PER CYCLE 3 COURSES
     Route: 042
     Dates: start: 20101218, end: 20110201
  28. VELCADE [Suspect]
     Active Substance: BORTEZOMIB
     Dosage: MAINTENANCE COURSE ON DAY 1 AND DAY 21
     Route: 042
     Dates: start: 20120803
  29. IMNOVID [Suspect]
     Active Substance: POMALIDOMIDE
     Dosage: CONSOLIDATION COURSE (2 COURSES)
     Route: 042
     Dates: start: 201511, end: 201601
  30. REVLIMID [Suspect]
     Active Substance: LENALIDOMIDE
     Dosage: ONCE PER CYCLE
     Route: 048
     Dates: start: 20120323
  31. BUSILVEX [Suspect]
     Active Substance: BUSULFAN
     Indication: PLASMA CELL MYELOMA
     Dosage: SINGLE DOSE, 8 TIMES
     Route: 042
     Dates: start: 20111025
  32. DEXAMETHASONE. [Suspect]
     Active Substance: DEXAMETHASONE
     Dosage: 1 COURSE
     Route: 065
     Dates: start: 20110222
  33. DEXAMETHASONE. [Suspect]
     Active Substance: DEXAMETHASONE
     Dosage: INTENSIFIED COURSE
     Route: 065
     Dates: start: 201304
  34. DEXAMETHASONE. [Suspect]
     Active Substance: DEXAMETHASONE
     Dosage: MAINTENANCE COURSE ON DAY 1 AND DAY 21
     Route: 065
     Dates: start: 20120803
  35. REVLIMID [Suspect]
     Active Substance: LENALIDOMIDE
     Dosage: ONCE PER CYCLE
     Route: 048
     Dates: start: 20120803
  36. REVLIMID [Suspect]
     Active Substance: LENALIDOMIDE
     Dosage: ONCE PER CYCLE
     Route: 048
     Dates: end: 201502
  37. VELCADE [Suspect]
     Active Substance: BORTEZOMIB
     Dosage: MAINTENANCE COURSE ON DAY 1 AND DAY 15
     Route: 042
     Dates: start: 20120323
  38. DEXAMETHASONE. [Suspect]
     Active Substance: DEXAMETHASONE
     Dosage: 1 COURSE
     Route: 065
     Dates: start: 20110422
  39. DEXAMETHASONE. [Suspect]
     Active Substance: DEXAMETHASONE
     Dosage: MAINTENANCE COURSE ON DAY 1 AND DAY 15
     Route: 065
     Dates: start: 20120323

REACTIONS (2)
  - Adenocarcinoma of colon [Not Recovered/Not Resolved]
  - Disease recurrence [Unknown]

NARRATIVE: CASE EVENT DATE: 201504
